FAERS Safety Report 15455944 (Version 14)
Quarter: 2022Q3

REPORT INFORMATION
  Report Type: Spontaneous
  Country: JP (occurrence: JP)
  Receive Date: 20181002
  Receipt Date: 20220713
  Transmission Date: 20221026
  Serious: Yes (Hospitalization, Other)
  Sender: FDA-Public Use
  Company Number: JP-UNITED THERAPEUTICS-UNT-2016-019775

PATIENT
  Age: 12 Year
  Sex: Male
  Weight: 31.4 kg

DRUGS (28)
  1. REMODULIN [Suspect]
     Active Substance: TREPROSTINIL
     Indication: Pulmonary arterial hypertension
     Dosage: 0.0094 ?G/KG, CONTINUING
     Route: 058
     Dates: start: 20161221
  2. REMODULIN [Suspect]
     Active Substance: TREPROSTINIL
     Dosage: 0.029 ?G/KG, CONTINUING
     Route: 058
     Dates: start: 20161223
  3. REMODULIN [Suspect]
     Active Substance: TREPROSTINIL
     Indication: Pulmonary arterial hypertension
     Dosage: UNK (CHANGED INFUSION RATE FROM 2.2 TO 1.1 ML/HOUR), CONTINUING
     Route: 058
  4. REMODULIN [Suspect]
     Active Substance: TREPROSTINIL
     Dosage: 0.029 ?G/KG, CONTINUING
     Route: 058
     Dates: end: 201703
  5. REMODULIN [Suspect]
     Active Substance: TREPROSTINIL
     Dosage: 0.024 ?G/KG, CONTINUING
     Route: 058
     Dates: start: 201703, end: 201708
  6. REMODULIN [Suspect]
     Active Substance: TREPROSTINIL
     Dosage: 0.025 ?G/KG, CONTINUING
     Route: 058
     Dates: start: 201708
  7. REMODULIN [Suspect]
     Active Substance: TREPROSTINIL
     Dosage: 0.038 ?G/KG, CONTINUING
     Route: 058
     Dates: end: 2019
  8. REMODULIN [Suspect]
     Active Substance: TREPROSTINIL
     Dosage: 0.027 ?G/KG, CONTINUING
     Route: 058
     Dates: start: 2019, end: 2019
  9. REMODULIN [Suspect]
     Active Substance: TREPROSTINIL
     Dosage: 0.038 ?G/KG, CONTINUING
     Route: 058
     Dates: start: 2019
  10. UPTRAVI [Suspect]
     Active Substance: SELEXIPAG
     Indication: Pulmonary arterial hypertension
     Dosage: 200 ?G, BID
     Route: 048
     Dates: start: 201712
  11. UPTRAVI [Suspect]
     Active Substance: SELEXIPAG
     Dosage: 600 ?G, QD
     Route: 048
  12. UPTRAVI [Suspect]
     Active Substance: SELEXIPAG
     Dosage: 400 ?G, QD
     Route: 048
  13. UPTRAVI [Suspect]
     Active Substance: SELEXIPAG
     Dosage: 0.2 MG, Q12H
     Route: 048
     Dates: start: 20171227, end: 20200120
  14. UPTRAVI [Suspect]
     Active Substance: SELEXIPAG
     Dosage: UNK
     Route: 048
     Dates: start: 2021
  15. UPTRAVI [Suspect]
     Active Substance: SELEXIPAG
     Dosage: 1.2 MG, QD
     Route: 048
  16. EPOPROSTENOL [Concomitant]
     Active Substance: EPOPROSTENOL
     Indication: Pulmonary arterial hypertension
     Dosage: UNK
     Route: 065
  17. EPOPROSTENOL [Concomitant]
     Active Substance: EPOPROSTENOL
     Dosage: UNK, (DOSE DECREASED)
     Route: 065
     Dates: start: 20161222
  18. EPOPROSTENOL [Concomitant]
     Active Substance: EPOPROSTENOL
     Dosage: 0.0188 ?G/KG, UNK
     Route: 065
     Dates: end: 20161223
  19. ADCIRCA [Concomitant]
     Active Substance: TADALAFIL
     Indication: Pulmonary arterial hypertension
     Dosage: 20 MG, QD (PER DAY)
     Route: 048
     Dates: start: 201405, end: 20190722
  20. OPSUMIT [Concomitant]
     Active Substance: MACITENTAN
     Indication: Pulmonary arterial hypertension
     Dosage: 10 MG, QD (PER DAY)
     Route: 048
     Dates: start: 201610
  21. XYZAL [Concomitant]
     Active Substance: LEVOCETIRIZINE DIHYDROCHLORIDE
     Indication: Pulmonary arterial hypertension
     Dosage: 5 MG, QD (PER DAY)
     Route: 048
  22. PETROLATUM [Concomitant]
     Active Substance: PETROLATUM
     Indication: Product used for unknown indication
     Dosage: 0.5 GRAM, QD (PER DAY)
     Route: 061
     Dates: end: 20180604
  23. MYSER [Concomitant]
     Indication: Product used for unknown indication
     Dosage: 0.5 GRAM, QD (PER DAY)
     Route: 061
  24. GLYCOSAMINOGLYCANS [Concomitant]
     Active Substance: GLYCOSAMINOGLYCANS
     Indication: Product used for unknown indication
     Dosage: 0.5 GRAM, QD (PER DAY)
     Route: 061
  25. ADEMPAS [Concomitant]
     Active Substance: RIOCIGUAT
     Indication: Pulmonary arterial hypertension
     Dosage: 2 MG, QD (PER DAY)
     Route: 048
     Dates: start: 20190723
  26. ADEMPAS [Concomitant]
     Active Substance: RIOCIGUAT
     Dosage: 4 MG, QD (PER DAY)
     Route: 048
  27. ADEMPAS [Concomitant]
     Active Substance: RIOCIGUAT
     Dosage: 2 MG, QD (PER DAY)
     Route: 048
  28. TADALAFIL [Concomitant]
     Active Substance: TADALAFIL
     Indication: Product used for unknown indication
     Dosage: UNK
     Route: 065
     Dates: start: 2021

REACTIONS (22)
  - Injection site infection [Unknown]
  - Injection site abscess [Unknown]
  - Device issue [Unknown]
  - Pulmonary hypertension [Unknown]
  - Foot fracture [Unknown]
  - Injection site pain [Recovering/Resolving]
  - Injection site swelling [Recovering/Resolving]
  - Dysphoria [Recovering/Resolving]
  - Infusion site rash [Not Recovered/Not Resolved]
  - Diarrhoea [Unknown]
  - Injection site erythema [Recovering/Resolving]
  - Injection site pruritus [Recovering/Resolving]
  - Therapy non-responder [Unknown]
  - Pulmonary arterial pressure increased [Unknown]
  - Injection site induration [Unknown]
  - Cardiac function test abnormal [Unknown]
  - Blood pressure decreased [Unknown]
  - Dyspnoea exertional [Unknown]
  - Oxygen saturation decreased [Unknown]
  - Brain natriuretic peptide increased [Unknown]
  - Weight decreased [Unknown]
  - Headache [Unknown]

NARRATIVE: CASE EVENT DATE: 20161221
